FAERS Safety Report 11096554 (Version 4)
Quarter: 2017Q1

REPORT INFORMATION
  Report Type: Report from Study
  Country: CN (occurrence: CN)
  Receive Date: 20150507
  Receipt Date: 20170301
  Transmission Date: 20170428
  Serious: Yes (Death, Hospitalization)
  Sender: FDA-Public Use
  Company Number: CN-ROCHE-1573221

PATIENT
  Age: 50 Year
  Sex: Male
  Weight: 68 kg

DRUGS (18)
  1. CIMETIDINE [Concomitant]
     Active Substance: CIMETIDINE
     Dosage: INDICATION - ANTI-ANAPHYLAXIS
     Route: 042
     Dates: start: 20150426, end: 20150426
  2. SODIUM BICARBONATE. [Concomitant]
     Active Substance: SODIUM BICARBONATE
     Dosage: INDICATION - ALKALIZED URINE
     Route: 042
     Dates: start: 20150426, end: 20150426
  3. TROPISETRON [Concomitant]
     Active Substance: TROPISETRON
     Route: 042
     Dates: start: 20150427, end: 20150428
  4. DIPHENHYDRAMINE. [Concomitant]
     Active Substance: DIPHENHYDRAMINE
     Dosage: INDICATION - ANTI-ANAPHYLAXIS
     Route: 042
     Dates: start: 20150426, end: 20150426
  5. LANSOPRAZOLE. [Concomitant]
     Active Substance: LANSOPRAZOLE
     Dosage: INDICATION - GASTRIC MUCOSA PROTECTION
     Route: 042
     Dates: start: 20150426, end: 20150428
  6. DEXAMETHASONE. [Concomitant]
     Active Substance: DEXAMETHASONE
     Dosage: INDICATION - ANTI-ANAPHYLAXIS
     Route: 042
     Dates: start: 20150426, end: 20150426
  7. POTASSIUM CHLORIDE. [Concomitant]
     Active Substance: POTASSIUM CHLORIDE
     Route: 042
     Dates: start: 20150427, end: 20150428
  8. CISPLATIN. [Suspect]
     Active Substance: CISPLATIN
     Indication: HER-2 POSITIVE GASTRIC CANCER
     Route: 042
     Dates: start: 20150307, end: 20150426
  9. TROPISETRON [Concomitant]
     Active Substance: TROPISETRON
     Dosage: INDICATION - ANTI-VOMITING
     Route: 042
     Dates: start: 20150426, end: 20150426
  10. PERTUZUMAB [Suspect]
     Active Substance: PERTUZUMAB
     Indication: HER-2 POSITIVE GASTRIC CANCER
     Route: 042
     Dates: start: 20150307, end: 20150426
  11. FUROSEMIDE. [Concomitant]
     Active Substance: FUROSEMIDE
     Dosage: INDICATION - URINATIVE
     Route: 042
     Dates: start: 20150426, end: 20150428
  12. POTASSIUM CHLORIDE. [Concomitant]
     Active Substance: POTASSIUM CHLORIDE
     Dosage: INDICATION - POTASSIUM SUPPLEMENT
     Route: 042
     Dates: start: 20150426, end: 20150426
  13. MANNITOL. [Concomitant]
     Active Substance: MANNITOL
     Dosage: INDICATION - DEPRIVATION OF BODY FLUIDS
     Route: 042
     Dates: start: 20150426, end: 20150426
  14. TRASTUZUMAB [Suspect]
     Active Substance: TRASTUZUMAB
     Dosage: MAINTAINENCE DOSE
     Route: 042
     Dates: end: 20150426
  15. TRASTUZUMAB [Suspect]
     Active Substance: TRASTUZUMAB
     Indication: HER-2 POSITIVE GASTRIC CANCER
     Dosage: LOADING DOSE
     Route: 042
     Dates: start: 20150307
  16. CAPECITABINE. [Suspect]
     Active Substance: CAPECITABINE
     Indication: HER-2 POSITIVE GASTRIC CANCER
     Route: 048
     Dates: start: 20150307, end: 20150503
  17. GLUTATHIONE [Concomitant]
     Active Substance: GLUTATHIONE
     Dosage: REPORTED AS REDUCED GLUTATHIONE, INDICATION - HEPAR PROTECTION
     Route: 042
     Dates: start: 20150426, end: 20150428
  18. SODIUM CHLORIDE. [Concomitant]
     Active Substance: SODIUM CHLORIDE
     Dosage: INDICATION - SODIUM SUPPLEMENT
     Route: 042
     Dates: start: 20150426, end: 20150426

REACTIONS (1)
  - Acute myocardial infarction [Fatal]

NARRATIVE: CASE EVENT DATE: 20150504
